FAERS Safety Report 17608560 (Version 1)
Quarter: 2020Q2

REPORT INFORMATION
  Report Type: Report from Study
  Country: US (occurrence: US)
  Receive Date: 20200401
  Receipt Date: 20200401
  Transmission Date: 20200713
  Serious: Yes (Hospitalization, Other)
  Sender: FDA-Public Use
  Company Number: US-BRISTOL-MYERS SQUIBB COMPANY-BMS-2019-066978

PATIENT
  Age: 62 Year
  Sex: Female
  Weight: 91.4 kg

DRUGS (2)
  1. NIVOLUMAB [Suspect]
     Active Substance: NIVOLUMAB
     Indication: NEUROENDOCRINE CARCINOMA OF THE SKIN
     Dosage: 274 MILLIGRAM
     Route: 042
     Dates: start: 20190320, end: 20190605
  2. TALIMOGENE LAHERPAREPVEC [Suspect]
     Active Substance: TALIMOGENE LAHERPAREPVEC
     Indication: NEUROENDOCRINE CARCINOMA OF THE SKIN
     Dosage: 4 MILLILITER
     Route: 036
     Dates: start: 20190319, end: 20190605

REACTIONS (5)
  - Wound infection [Recovered/Resolved]
  - Hypotension [Unknown]
  - Anaemia [Unknown]
  - Tumour pain [Unknown]
  - Hypoxia [Recovered/Resolved]

NARRATIVE: CASE EVENT DATE: 20190608
